FAERS Safety Report 9296220 (Version 2)
Quarter: 2013Q2

REPORT INFORMATION
  Report Type: Spontaneous
  Country: JP (occurrence: JP)
  Receive Date: 20130517
  Receipt Date: 20130611
  Transmission Date: 20140414
  Serious: Yes (Other)
  Sender: FDA-Public Use
  Company Number: JP-ASTRAZENECA-2013SE32767

PATIENT
  Age: 40 Year
  Sex: Female
  Weight: 44 kg

DRUGS (2)
  1. XYLOCAINE WITH EPINEPHRINE [Suspect]
     Indication: LOCAL ANAESTHESIA
     Route: 053
  2. MIDAZOLAM [Concomitant]
     Indication: SEDATIVE THERAPY
     Route: 065

REACTIONS (1)
  - Sick sinus syndrome [Recovered/Resolved]
